FAERS Safety Report 10283398 (Version 1)
Quarter: 2014Q3

REPORT INFORMATION
  Report Type: Report from Study
  Country: CA (occurrence: CA)
  Receive Date: 20140708
  Receipt Date: 20140708
  Transmission Date: 20150326
  Serious: Yes (Other)
  Sender: FDA-Public Use
  Company Number: CA-JNJFOC-20140701561

PATIENT
  Age: 60 Year
  Sex: Male
  Weight: 86 kg

DRUGS (2)
  1. REMICADE [Suspect]
     Active Substance: INFLIXIMAB
     Indication: CROHN^S DISEASE
     Dosage: 10MG/KG
     Route: 042
     Dates: start: 20130621, end: 20140701
  2. BENADRY [Concomitant]
     Indication: PREMEDICATION
     Route: 048

REACTIONS (4)
  - Palatal oedema [Recovered/Resolved]
  - Infusion related reaction [Recovered/Resolved]
  - Pharyngeal erythema [Recovered/Resolved]
  - Dyspnoea [Recovered/Resolved]

NARRATIVE: CASE EVENT DATE: 20140701
